FAERS Safety Report 8381437 (Version 3)
Quarter: 2012Q4

REPORT INFORMATION
  Report Type: 
  Country: US (occurrence: US)
  Receive Date: 20120131
  Receipt Date: 20121025
  Transmission Date: 20130627
  Serious: Yes (Other)
  Sender: FDA-Public Use
  Company Number: US-US-EMD SERONO, INC.-7109005

PATIENT
  Age: 59 None
  Sex: Female
  Weight: 67 kg

DRUGS (4)
  1. REBIF [Suspect]
     Indication: MULTIPLE SCLEROSIS
     Dates: start: 20080205
  2. IBUPROFEN [Concomitant]
     Indication: PAIN
     Dates: start: 2007
  3. IBUPROFEN [Concomitant]
  4. VITAMINS: OLIGO VITALITY PACK [Concomitant]
     Indication: ROUTINE HEALTH MAINTENANCE
     Dates: start: 2007

REACTIONS (3)
  - Appendicitis [Recovered/Resolved]
  - Abdominal hernia [Recovered/Resolved]
  - Wound infection fungal [Recovered/Resolved]
